FAERS Safety Report 20520355 (Version 2)
Quarter: 2022Q1

REPORT INFORMATION
  Report Type: Spontaneous
  Country: BR (occurrence: BR)
  Receive Date: 20220225
  Receipt Date: 20220331
  Transmission Date: 20220423
  Serious: Yes (Hospitalization)
  Sender: FDA-Public Use
  Company Number: BR-TEVA-2022-BR-2010323

PATIENT
  Age: 63 Year
  Sex: Female

DRUGS (12)
  1. COPAXONE [Suspect]
     Active Substance: GLATIRAMER ACETATE
     Indication: Multiple sclerosis
     Route: 065
     Dates: start: 20190215
  2. IMPERE [Concomitant]
  3. LOSARTAN [Concomitant]
     Active Substance: LOSARTAN
  4. PURAN [Concomitant]
     Active Substance: LEVOTHYROXINE SODIUM
  5. INSULIN NOS [Concomitant]
     Active Substance: INSULIN NOS
     Dosage: 25 NPH UNITS AND 4 UNITS FOR REGULAR (OVER 5 YEARS)
  6. CARVEDILOL [Concomitant]
     Active Substance: CARVEDILOL
  7. VITAMIN D [Concomitant]
     Active Substance: VITAMIN D NOS
     Dosage: NOT USED CONTINUOUSLY
  8. Immunofla [Concomitant]
     Dosage: NOT OF CONTINUOUS USE
  9. ROSUVASTATIN [Concomitant]
     Active Substance: ROSUVASTATIN
  10. AMITRIPTYLINE [Concomitant]
     Active Substance: AMITRIPTYLINE
  11. MACRODANTIN [Concomitant]
     Active Substance: NITROFURANTOIN
  12. TENSULAN [Concomitant]
     Dosage: DOES NOT KNOW IF IT WILL BE CONTINUOUS

REACTIONS (4)
  - Bacterial infection [Recovered/Resolved]
  - Blood glucose increased [Recovering/Resolving]
  - Urinary tract infection [Unknown]
  - Confusional state [Unknown]

NARRATIVE: CASE EVENT DATE: 20211001
